FAERS Safety Report 7486132-2 (Version None)
Quarter: 2011Q2

REPORT INFORMATION
  Report Type: 
  Country: None (occurrence: None)
  Receive Date: 20110517
  Receipt Date: 20110510
  Transmission Date: 20111010
  Serious: Yes (Death, Hospitalization)
  Sender: FDA-Public Use
  Company Number: GB-PFIZER INC-HQWYE370702AUG07

PATIENT
  Age: 16 Month

DRUGS (1)
  1. IBUPROFEN [Suspect]
     Indication: PRODUCT USED FOR UNKNOWN INDICATION
     Dosage: 469 MG/KG
     Route: 065

REACTIONS (5)
  - OVERDOSE [None]
  - APNOEA [None]
  - CONVULSION [None]
  - SEPSIS [None]
  - PNEUMONIA ASPIRATION [None]
